FAERS Safety Report 4907926-0 (Version None)
Quarter: 2006Q1

REPORT INFORMATION
  Report Type: 
  Country: None (occurrence: None)
  Receive Date: 20060207
  Receipt Date: 20060126
  Transmission Date: 20060701
  Serious: Yes (Hospitalization)
  Sender: FDA-Public Use
  Company Number: 2005BI022737

PATIENT
  Age: 49 Year
  Sex: Male

DRUGS (2)
  1. AVONEX LIQUID [Suspect]
     Indication: MULTIPLE SCLEROSIS
     Dosage: 30 UG QW IM
     Route: 030
     Dates: start: 20050928, end: 20051209
  2. AVONEX [Suspect]
     Indication: MULTIPLE SCLEROSIS
     Dosage: IM
     Route: 030

REACTIONS (4)
  - BACTERIAL SEPSIS [None]
  - GASTROENTERITIS ESCHERICHIA COLI [None]
  - HEPATIC LESION [None]
  - IMMUNOSUPPRESSION [None]
